FAERS Safety Report 8963261 (Version 2)
Quarter: 2014Q2

REPORT INFORMATION
  Report Type: Report from Study
  Country: SE (occurrence: SE)
  Receive Date: 20121214
  Receipt Date: 20131018
  Transmission Date: 20141212
  Serious: Yes (Hospitalization)
  Sender: FDA-Public Use
  Company Number: SE-PFIZER INC-2012312793

PATIENT
  Age: 56 Year
  Sex: Male
  Weight: 78 kg

DRUGS (21)
  1. PREDNISOLONE [Suspect]
     Indication: RENAL TRANSPLANT
     Dosage: 10 MG, 1X/DAY
     Route: 048
     Dates: start: 20030515
  2. PREDNISOLONE [Suspect]
     Dosage: 100 MG, 2 TOTAL
     Route: 048
     Dates: start: 20030719
  3. PREDNISOLONE [Suspect]
     Dosage: 5 MG, 1X/DAY
     Route: 048
     Dates: start: 20030720
  4. METHYLPREDNISOLONE SODIUM SUCCINATE [Suspect]
     Indication: PROPHYLAXIS AGAINST TRANSPLANT REJECTION
     Dosage: 500 MG, 1 TOTAL
     Route: 042
     Dates: start: 20030514
  5. METHYLPREDNISOLONE SODIUM SUCCINATE [Suspect]
     Dosage: 250 MG, 1X/DAY
     Route: 042
     Dates: start: 20030521, end: 20030526
  6. METHYLPREDNISOLONE SODIUM SUCCINATE [Suspect]
     Dosage: 250 MG, 1X/DAY
     Route: 042
     Dates: start: 20030716, end: 20030719
  7. METHYLPREDNISOLONE SODIUM SUCCINATE [Suspect]
     Dosage: 250 MG, 1X/DAY
     Dates: start: 20030815, end: 20030819
  8. PREDNISOLONE [Suspect]
     Indication: PROPHYLAXIS AGAINST TRANSPLANT REJECTION
     Dosage: 50 MG, 1X/DAY
     Route: 042
     Dates: start: 20030514, end: 20030514
  9. MYCOPHENOLATE MOFETIL [Suspect]
     Indication: PROPHYLAXIS AGAINST TRANSPLANT REJECTION
     Dosage: 1 G, 2X/DAY
     Route: 048
     Dates: start: 20030514
  10. MYCOPHENOLATE MOFETIL [Suspect]
     Dosage: 750 MG, 2X/DAY
     Route: 048
     Dates: start: 20030517
  11. MYCOPHENOLATE MOFETIL [Suspect]
     Dosage: 750 MG, 2X/DAY
     Route: 048
     Dates: start: 20030717
  12. MYCOPHENOLATE MOFETIL [Suspect]
     Dosage: 500 MG, 2X/DAY
     Route: 048
     Dates: start: 20030718
  13. MYCOPHENOLATE MOFETIL [Suspect]
     Dosage: 375 MG, 2X/DAY
     Route: 048
     Dates: start: 20031218, end: 20060302
  14. MYCOPHENOLATE MOFETIL [Suspect]
     Indication: PROPHYLAXIS AGAINST TRANSPLANT REJECTION
     Dosage: 500 MG, 2X/DAY
     Route: 048
     Dates: start: 20060303
  15. TACROLIMUS [Suspect]
     Indication: PROPHYLAXIS AGAINST TRANSPLANT REJECTION
     Dosage: 2.5 MG, 2X/DAY
     Route: 048
     Dates: start: 20030717
  16. CICLOSPORIN [Suspect]
     Indication: PROPHYLAXIS AGAINST TRANSPLANT REJECTION
     Dosage: 112.5 MG, 2X/DAY
     Route: 048
     Dates: start: 20030515, end: 20030717
  17. METOPROLOL [Concomitant]
     Dosage: 50 MG, 1X/DAY
     Route: 048
     Dates: start: 200205
  18. FELODIPINE [Concomitant]
     Dosage: 5 MG, 1X/DAY
     Route: 048
     Dates: start: 20030501
  19. ACTRAPID [Concomitant]
     Dosage: 6 IU, 1X/DAY
     Route: 058
     Dates: start: 20030514, end: 20030602
  20. ACTRAPID [Concomitant]
     Dosage: 8 IU, 1X/DAY
     Route: 058
     Dates: start: 20030716, end: 20030719
  21. ACTRAPID [Concomitant]
     Dosage: 23 IU, AS NEEDED
     Route: 058
     Dates: start: 20030815, end: 20030819

REACTIONS (1)
  - Diabetes mellitus [Not Recovered/Not Resolved]
